FAERS Safety Report 18767227 (Version 1)
Quarter: 2021Q1

REPORT INFORMATION
  Report Type: Spontaneous
  Country: US (occurrence: US)
  Receive Date: 20210121
  Receipt Date: 20210121
  Transmission Date: 20210419
  Serious: No
  Sender: FDA-Public Use
  Company Number: None

PATIENT
  Age: 17 Year
  Sex: Female

DRUGS (10)
  1. LORBRENA [Suspect]
     Active Substance: LORLATINIB
     Indication: CHEMOTHERAPY
     Route: 048
     Dates: start: 20200624
  2. ATIVAN [Concomitant]
     Active Substance: LORAZEPAM
  3. DEXAMETHASON [Concomitant]
     Active Substance: DEXAMETHASONE
  4. OXYCODONE [Concomitant]
     Active Substance: OXYCODONE
  5. FAMOTIDINE. [Concomitant]
     Active Substance: FAMOTIDINE
  6. VALTREX [Concomitant]
     Active Substance: VALACYCLOVIR HYDROCHLORIDE
  7. GABAPENTIN. [Concomitant]
     Active Substance: GABAPENTIN
  8. DULCOLAX NOS [Concomitant]
     Active Substance: BISACODYL OR DOCUSATE SODIUM
  9. MELATONIN [Concomitant]
     Active Substance: MELATONIN
  10. KITABIS PAK [Concomitant]
     Active Substance: TOBRAMYCIN

REACTIONS (3)
  - Sleep disorder [None]
  - Decreased appetite [None]
  - Blood cholesterol increased [None]
